FAERS Safety Report 11869286 (Version 1)
Quarter: 2015Q4

REPORT INFORMATION
  Report Type: Spontaneous
  Country: FR (occurrence: FR)
  Receive Date: 20151226
  Receipt Date: 20151226
  Transmission Date: 20160305
  Serious: Yes (Hospitalization)
  Sender: FDA-Public Use
  Company Number: PHHY2015FR167543

PATIENT
  Age: 53 Year
  Sex: Female

DRUGS (5)
  1. ZYKADIA [Suspect]
     Active Substance: CERITINIB
     Indication: NON-SMALL CELL LUNG CANCER
     Dosage: 150 MG, BID
     Route: 048
     Dates: start: 201508
  2. ZYKADIA [Suspect]
     Active Substance: CERITINIB
     Dosage: 150 MG, TID
     Route: 048
     Dates: start: 201509, end: 20151210
  3. ZYKADIA [Suspect]
     Active Substance: CERITINIB
     Dosage: 150 MG, BID
     Route: 048
     Dates: start: 20151210
  4. ZYKADIA [Suspect]
     Active Substance: CERITINIB
     Dosage: 150 MG, BID
     Route: 048
     Dates: start: 201509
  5. ZYKADIA [Suspect]
     Active Substance: CERITINIB
     Dosage: 150 MG, 5QD
     Route: 048
     Dates: end: 201508

REACTIONS (5)
  - Pyrexia [Unknown]
  - Pleural effusion [Recovering/Resolving]
  - Abdominal pain [Recovering/Resolving]
  - Cardiomegaly [Unknown]
  - Pericarditis [Recovering/Resolving]

NARRATIVE: CASE EVENT DATE: 201508
